FAERS Safety Report 19245231 (Version 2)
Quarter: 2021Q2

REPORT INFORMATION
  Report Type: Spontaneous
  Country: TR (occurrence: TR)
  Receive Date: 20210511
  Receipt Date: 20210518
  Transmission Date: 20210717
  Serious: Yes (Other)
  Sender: FDA-Public Use
  Company Number: TR-GILEAD-2021-0529923

PATIENT
  Age: 28 Year
  Sex: Male

DRUGS (2)
  1. GENVOYA [Suspect]
     Active Substance: COBICISTAT\ELVITEGRAVIR\EMTRICITABINE\TENOFOVIR ALAFENAMIDE FUMARATE
     Indication: HIV INFECTION
     Dosage: UNK
     Route: 065
     Dates: start: 20200131, end: 202011
  2. DEXAMETHASONE. [Concomitant]
     Active Substance: DEXAMETHASONE

REACTIONS (7)
  - Substance use [Unknown]
  - Decreased appetite [Unknown]
  - Depression [Unknown]
  - Treatment noncompliance [Recovered/Resolved]
  - Weight decreased [Unknown]
  - Eating disorder [Unknown]
  - Anxiety [Unknown]

NARRATIVE: CASE EVENT DATE: 202006
